FAERS Safety Report 10143217 (Version 2)
Quarter: 2014Q2

REPORT INFORMATION
  Report Type: Spontaneous
  Country: TN (occurrence: TN)
  Receive Date: 20140430
  Receipt Date: 20140616
  Transmission Date: 20141212
  Serious: Yes (Death, Other)
  Sender: FDA-Public Use
  Company Number: TN-ASTRAZENECA-2014SE29199

PATIENT
  Age: 84 Year
  Sex: Female

DRUGS (18)
  1. ESOMEPRAZOLE [Suspect]
     Indication: DIZZINESS
     Route: 048
     Dates: start: 201305
  2. ESOMEPRAZOLE [Suspect]
     Indication: ASTHENIA
     Route: 048
     Dates: start: 201305
  3. ESOMEPRAZOLE [Suspect]
     Indication: DYSPEPSIA
     Route: 048
     Dates: start: 201305
  4. ETILEFRINE [Suspect]
     Indication: DIZZINESS
     Dates: start: 201305
  5. ETILEFRINE [Suspect]
     Indication: ASTHENIA
     Dates: start: 201305
  6. ETILEFRINE [Suspect]
     Indication: DYSPEPSIA
     Dates: start: 201305
  7. ACETYL-DL-LEUCINE [Suspect]
     Indication: DIZZINESS
     Dates: start: 201305
  8. ACETYL-DL-LEUCINE [Suspect]
     Indication: ASTHENIA
     Dates: start: 201305
  9. ACETYL-DL-LEUCINE [Suspect]
     Indication: DYSPEPSIA
     Dates: start: 201305
  10. HEMATOPORPHYRIN [Suspect]
     Indication: DIZZINESS
     Dosage: 1 AMPOULE/DAY
     Dates: start: 201305
  11. HEMATOPORPHYRIN [Suspect]
     Indication: ASTHENIA
     Dosage: 1 AMPOULE/DAY
     Dates: start: 201305
  12. HEMATOPORPHYRIN [Suspect]
     Indication: DYSPEPSIA
     Dosage: 1 AMPOULE/DAY
     Dates: start: 201305
  13. VITAMIN B1 [Suspect]
     Indication: DIZZINESS
     Dosage: 1 AMPOULE/DAY
     Dates: start: 201305
  14. VITAMIN B1 [Suspect]
     Indication: ASTHENIA
     Dosage: 1 AMPOULE/DAY
     Dates: start: 201305
  15. VITAMIN B1 [Suspect]
     Indication: DYSPEPSIA
     Dosage: 1 AMPOULE/DAY
     Dates: start: 201305
  16. VITAMIN B12 [Suspect]
     Indication: DIZZINESS
     Dosage: 1 AMPOULE/DAY
     Dates: start: 201305
  17. VITAMIN B12 [Suspect]
     Indication: ASTHENIA
     Dosage: 1 AMPOULE/DAY
     Dates: start: 201305
  18. VITAMIN B12 [Suspect]
     Indication: DYSPEPSIA
     Dosage: 1 AMPOULE/DAY
     Dates: start: 201305

REACTIONS (2)
  - Drug reaction with eosinophilia and systemic symptoms [Fatal]
  - Multi-organ failure [Fatal]
